FAERS Safety Report 7363114-2 (Version None)
Quarter: 2011Q1

REPORT INFORMATION
  Report Type: 
  Country: None (occurrence: None)
  Receive Date: 20110321
  Receipt Date: 20100920
  Transmission Date: 20110831
  Serious: Yes (Other)
  Sender: FDA-Public Use
  Company Number: US-BAYER-201015605NA

PATIENT
  Sex: Female
  Weight: 52 kg

DRUGS (19)
  1. PROPOFOL [Concomitant]
     Indication: CHOLECYSTECTOMY
     Dosage: 10 ?G (DAILY DOSE), ,
     Dates: start: 20080317, end: 20080317
  2. ALIMENTARY TRACT AND METABOLISM [Concomitant]
  3. FENTANYL [Concomitant]
     Indication: ENDOSCOPIC RETROGRADE CHOLANGIOPANCREATOGRAPHY
  4. PROPOFOL [Concomitant]
     Indication: DUODENAL SPHINCTEROTOMY
  5. YASMIN [Suspect]
     Indication: CONTRACEPTION
     Route: 048
     Dates: start: 20020901, end: 20100201
  6. OCELLA [Suspect]
     Indication: CONTRACEPTION
     Route: 048
     Dates: start: 20020901, end: 20100201
  7. HURRICAINE [Concomitant]
     Indication: CHOLELITHIASIS
     Dates: start: 20080317, end: 20080317
  8. VERSED [Concomitant]
     Indication: ENDOSCOPIC RETROGRADE CHOLANGIOPANCREATOGRAPHY
  9. ZANTAC [Concomitant]
  10. HURRICAINE [Concomitant]
     Indication: DUODENAL SPHINCTEROTOMY
  11. PROPOFOL [Concomitant]
     Indication: ENDOSCOPIC RETROGRADE CHOLANGIOPANCREATOGRAPHY
  12. UNCODEABLE ^UNCLASSIFIABLE^ [Concomitant]
  13. FENTANYL [Concomitant]
     Indication: DUODENAL SPHINCTEROTOMY
  14. PEPCID [Concomitant]
  15. VERSED [Concomitant]
     Indication: CHOLECYSTECTOMY
     Dosage: 4 ?G (DAILY DOSE), , INTRAVENOUS
     Route: 042
     Dates: start: 20080317, end: 20080317
  16. FENTANYL [Concomitant]
     Indication: CHOLELITHIASIS
     Dosage: 100 ?G (DAILY DOSE), ,
     Dates: start: 20080317, end: 20080317
  17. VERSED [Concomitant]
     Indication: DUODENAL SPHINCTEROTOMY
  18. HURRICAINE [Concomitant]
     Indication: ENDOSCOPIC RETROGRADE CHOLANGIOPANCREATOGRAPHY
  19. LUTERA-28 [Concomitant]

REACTIONS (13)
  - HEPATIC ENZYME INCREASED [None]
  - HEPATIC FUNCTION ABNORMAL [None]
  - CHOLELITHIASIS [None]
  - ABDOMINAL PAIN [None]
  - BILE DUCT STONE [None]
  - JAUNDICE [None]
  - CONSTIPATION [None]
  - DECREASED APPETITE [None]
  - GASTRITIS [None]
  - DYSPEPSIA [None]
  - VOMITING [None]
  - CHOLECYSTITIS CHRONIC [None]
  - ABDOMINAL PAIN UPPER [None]
